FAERS Safety Report 12861814 (Version 2)
Quarter: 2017Q1

REPORT INFORMATION
  Report Type: Spontaneous
  Country: US (occurrence: US)
  Receive Date: 20161019
  Receipt Date: 20170208
  Transmission Date: 20170428
  Serious: Yes (Other)
  Sender: FDA-Public Use
  Company Number: US-REGENERON PHARMACEUTICALS, INC.-2016-20325

PATIENT

DRUGS (2)
  1. EYLEA [Suspect]
     Active Substance: AFLIBERCEPT
     Indication: AGE-RELATED MACULAR DEGENERATION
     Dosage: UNK UNK, AS NECESSARY
     Route: 031
     Dates: start: 2015, end: 20160113
  2. SIMVASTATIN. [Concomitant]
     Active Substance: SIMVASTATIN
     Indication: BLOOD CHOLESTEROL ABNORMAL
     Dosage: 40 MG MILLIGRAM(S), UNK
     Dates: start: 2011

REACTIONS (2)
  - Neovascular age-related macular degeneration [Recovered/Resolved]
  - Metamorphopsia [Unknown]

NARRATIVE: CASE EVENT DATE: 20160806
